FAERS Safety Report 4576852-1 (Version None)
Quarter: 2005Q1

REPORT INFORMATION
  Report Type: 
  Country: None (occurrence: None)
  Receive Date: 20050207
  Receipt Date: 20050124
  Transmission Date: 20050727
  Serious: Yes (Death, Hospitalization)
  Sender: FDA-Public Use
  Company Number: 204487

PATIENT
  Age: 64 Year
  Sex: Female
  Weight: 58.9676 kg

DRUGS (2)
  1. AVONEX [Suspect]
     Indication: MULTIPLE SCLEROSIS
     Dosage: IM
     Route: 030
     Dates: start: 19980101, end: 20040601
  2. MS MEDICATION (NOS) [Concomitant]

REACTIONS (9)
  - ANXIETY [None]
  - ASTHENIA [None]
  - DIFFICULTY IN WALKING [None]
  - GALLBLADDER CANCER [None]
  - GASTRIC CANCER [None]
  - GASTROINTESTINAL CARCINOMA [None]
  - LUNG INFILTRATION [None]
  - RESPIRATORY ARREST [None]
  - SMALL INTESTINE CARCINOMA [None]
